FAERS Safety Report 13711149 (Version 1)
Quarter: 2017Q3

REPORT INFORMATION
  Report Type: Spontaneous
  Country: IN (occurrence: IN)
  Receive Date: 20170703
  Receipt Date: 20170703
  Transmission Date: 20171127
  Serious: Yes (Hospitalization)
  Sender: FDA-Public Use
  Company Number: IN-NORTH CREEK PHARMACEUTICALS LLC-2017VTS00640

PATIENT
  Age: 35 Year
  Sex: Male

DRUGS (3)
  1. CLOFAZIMINE [Concomitant]
     Active Substance: CLOFAZIMINE
     Dosage: 50 MG, 1X/DAY
     Route: 065
     Dates: start: 20130820, end: 20130918
  2. DAPSONE. [Suspect]
     Active Substance: DAPSONE
     Indication: LEPROSY
     Dosage: 100 MG, UNK
     Route: 065
     Dates: start: 20130820, end: 20130918
  3. RIFAMPICIN [Concomitant]
     Active Substance: RIFAMPIN
     Dosage: 450 MG, 1X/MONTH
     Route: 065
     Dates: start: 20130820, end: 20130918

REACTIONS (1)
  - Drug reaction with eosinophilia and systemic symptoms [Recovering/Resolving]

NARRATIVE: CASE EVENT DATE: 20130905
